FAERS Safety Report 15901355 (Version 1)
Quarter: 2019Q1

REPORT INFORMATION
  Report Type: Spontaneous
  Country: FR (occurrence: FR)
  Receive Date: 20190201
  Receipt Date: 20190201
  Transmission Date: 20190417
  Serious: Yes (Life-Threatening, Hospitalization)
  Sender: FDA-Public Use
  Company Number: FR-TEVA-2019-FR-1006146

PATIENT
  Age: 50 Year
  Sex: Male
  Weight: 96 kg

DRUGS (5)
  1. ALPRAZOLAM. [Suspect]
     Active Substance: ALPRAZOLAM
     Indication: TOXICITY TO VARIOUS AGENTS
     Route: 048
     Dates: start: 20181203
  2. ZOPICLONE [Concomitant]
     Active Substance: ZOPICLONE
  3. BACLOFENE [Concomitant]
     Active Substance: BACLOFEN
  4. DOLIPRANE [Concomitant]
     Active Substance: ACETAMINOPHEN
  5. IBUPROFENE [Concomitant]
     Active Substance: IBUPROFEN

REACTIONS (1)
  - Altered state of consciousness [Recovered/Resolved]

NARRATIVE: CASE EVENT DATE: 20181203
